FAERS Safety Report 8417343-7 (Version None)
Quarter: 2012Q2

REPORT INFORMATION
  Report Type: 
  Country: None (occurrence: None)
  Receive Date: 20120606
  Receipt Date: 20120530
  Transmission Date: 20120825
  Serious: Yes (Death, Other)
  Sender: FDA-Public Use
  Company Number: DE-MPIJNJ-2012-03916

PATIENT

DRUGS (12)
  1. VELCADE [Suspect]
  2. CYCLOPHOSPHAMIDE [Suspect]
     Indication: MULTIPLE MYELOMA
  3. CYCLOSPORINE [Suspect]
     Indication: MULTIPLE MYELOMA
  4. PREDNISONE TAB [Suspect]
     Indication: MULTIPLE MYELOMA
  5. REVLIMID [Suspect]
  6. CYCLOSPORINE [Suspect]
  7. VELCADE [Suspect]
     Indication: MULTIPLE MYELOMA
     Dosage: UNK
  8. REVLIMID [Suspect]
     Indication: MULTIPLE MYELOMA
  9. CYCLOPHOSPHAMIDE [Suspect]
  10. DEXAMETHASONE [Suspect]
     Indication: MULTIPLE MYELOMA
  11. DEXAMETHASONE [Suspect]
  12. PREDNISONE TAB [Suspect]

REACTIONS (6)
  - PARAPLEGIA [None]
  - STEVENS-JOHNSON SYNDROME [None]
  - CHRONIC GRAFT VERSUS HOST DISEASE IN SKIN [None]
  - RENAL FAILURE [None]
  - DISEASE PROGRESSION [None]
  - TOXIC EPIDERMAL NECROLYSIS [None]
